FAERS Safety Report 14431367 (Version 1)
Quarter: 2018Q1

REPORT INFORMATION
  Report Type: Spontaneous
  Country: US (occurrence: US)
  Receive Date: 20180124
  Receipt Date: 20180124
  Transmission Date: 20180509
  Serious: No
  Sender: FDA-Public Use
  Company Number: US-PFIZER INC-2018028832

PATIENT
  Age: 22 Year
  Sex: Female

DRUGS (1)
  1. EUCRISA [Suspect]
     Active Substance: CRISABOROLE
     Dosage: 2 %, 2X/DAY(ON HER CHEST, NECK, FACE, ARMS AND SHOULDERS)
     Dates: start: 201712

REACTIONS (2)
  - Condition aggravated [Unknown]
  - Hyperaesthesia [Unknown]
